FAERS Safety Report 25843694 (Version 1)
Quarter: 2025Q3

REPORT INFORMATION
  Report Type: Spontaneous
  Country: EU (occurrence: EU)
  Receive Date: 20250924
  Receipt Date: 20250924
  Transmission Date: 20251020
  Serious: Yes (Death, Other)
  Sender: AMGEN
  Company Number: EU-AMGEN-ESPSP2025186904

PATIENT

DRUGS (1)
  1. TRASTUZUMAB [Suspect]
     Active Substance: TRASTUZUMAB
     Indication: HER2 positive gastric cancer
     Route: 065

REACTIONS (2)
  - Death [Fatal]
  - HER2 positive gastric cancer [Unknown]
